FAERS Safety Report 22100104 (Version 6)
Quarter: 2024Q2

REPORT INFORMATION
  Report Type: Spontaneous
  Country: US (occurrence: US)
  Receive Date: 20230315
  Receipt Date: 20240415
  Transmission Date: 20240716
  Serious: Yes (Disabling, Other)
  Sender: FDA-Public Use
  Company Number: US-HORIZON THERAPEUTICS-HZN-2023-001821

PATIENT

DRUGS (18)
  1. TEPEZZA [Suspect]
     Active Substance: TEPROTUMUMAB-TRBW
     Indication: Endocrine ophthalmopathy
     Dosage: 900 MG FIRST INFUSION
     Route: 042
     Dates: start: 20210823
  2. TEPEZZA [Suspect]
     Active Substance: TEPROTUMUMAB-TRBW
     Indication: Graves^ disease
     Dosage: 1800 MG (SECOND INFUSION)
     Route: 042
     Dates: start: 20210913
  3. TEPEZZA [Suspect]
     Active Substance: TEPROTUMUMAB-TRBW
     Indication: Toxic goitre
     Dosage: 1760 MG (THIRD INFUSION)
     Route: 042
     Dates: start: 20211004
  4. TEPEZZA [Suspect]
     Active Substance: TEPROTUMUMAB-TRBW
     Dosage: 1760 MG (FOURTH INFUSION)
     Route: 042
     Dates: start: 20211025
  5. TEPEZZA [Suspect]
     Active Substance: TEPROTUMUMAB-TRBW
     Dosage: 1720 MG (FIFTH INFUSION)
     Route: 042
     Dates: start: 20211122
  6. TEPEZZA [Suspect]
     Active Substance: TEPROTUMUMAB-TRBW
     Dosage: 1720 MG (SIXTH INFUSION)
     Route: 042
     Dates: start: 20211213
  7. TEPEZZA [Suspect]
     Active Substance: TEPROTUMUMAB-TRBW
     Dosage: 1660 MG (SEVENTH INFUSION)
     Route: 042
     Dates: start: 20220111
  8. TEPEZZA [Suspect]
     Active Substance: TEPROTUMUMAB-TRBW
     Dosage: 1700 MG EIGHT INFUSION
     Route: 042
     Dates: start: 20220201
  9. AMLODIPINE [Concomitant]
     Active Substance: AMLODIPINE BESYLATE
     Dosage: UNK
     Route: 048
  10. FLUTICASONE [Concomitant]
     Active Substance: FLUTICASONE
     Dosage: 50 UG
     Dates: start: 20191008
  11. LATANOPROST [Concomitant]
     Active Substance: LATANOPROST
     Dosage: 1 DROP, QD
     Route: 047
     Dates: start: 20200502
  12. LOSARTAN [Concomitant]
     Active Substance: LOSARTAN
     Dosage: 1 TABLET BY MOUTH EVERY MORNING
     Route: 048
     Dates: start: 20200113
  13. METHIMAZOLE [Concomitant]
     Active Substance: METHIMAZOLE
     Dosage: 5 MG, QD
     Route: 048
     Dates: start: 20220121
  14. SERTRALINE [Concomitant]
     Active Substance: SERTRALINE HYDROCHLORIDE
     Dosage: UNK, QD
     Route: 048
     Dates: start: 20190618
  15. METOPROLOL SUCCINATE [Concomitant]
     Active Substance: METOPROLOL SUCCINATE
     Dosage: UNK, BID
     Route: 048
     Dates: start: 20171103
  16. TAPAZOLE [Concomitant]
     Active Substance: METHIMAZOLE
     Dosage: 1/2 TABLET, ONCE DAILY
  17. NAPROXEN [Concomitant]
     Active Substance: NAPROXEN
     Dosage: 500 MG, BID
     Route: 048
  18. BRIMONIDINE TARTRATE [Concomitant]
     Active Substance: BRIMONIDINE TARTRATE
     Dosage: 1 DROP, TID
     Route: 047

REACTIONS (27)
  - Deafness permanent [Unknown]
  - Disability [Unknown]
  - Hyperkalaemia [Unknown]
  - Injury [Unknown]
  - Pain [Unknown]
  - Concomitant disease aggravated [Unknown]
  - Impaired quality of life [Unknown]
  - Discomfort [Unknown]
  - Anxiety [Unknown]
  - Emotional distress [Unknown]
  - Tinnitus [Unknown]
  - Dry eye [Unknown]
  - Eye pruritus [Unknown]
  - Nasal congestion [Unknown]
  - Joint range of motion decreased [Unknown]
  - Pollakiuria [Unknown]
  - Breast hyperplasia [Unknown]
  - Fibrocystic breast disease [Unknown]
  - Breast calcifications [Unknown]
  - Intraductal papilloma of breast [Unknown]
  - Enuresis [Unknown]
  - Peripheral swelling [Unknown]
  - Asthenia [Unknown]
  - Fatigue [Unknown]
  - Exophthalmos [Unknown]
  - Economic problem [Unknown]
  - Product quality issue [Unknown]

NARRATIVE: CASE EVENT DATE: 20210801
